FAERS Safety Report 13677346 (Version 1)
Quarter: 2017Q2

REPORT INFORMATION
  Report Type: Spontaneous
  Country: US (occurrence: US)
  Receive Date: 20170621
  Receipt Date: 20170621
  Transmission Date: 20170830
  Serious: Yes (Life-Threatening, Hospitalization, Other)
  Sender: FDA-Public Use
  Company Number: None

PATIENT
  Age: 53 Year
  Sex: Female
  Weight: 58.5 kg

DRUGS (1)
  1. XANAX [Suspect]
     Active Substance: ALPRAZOLAM
     Indication: ANXIETY
     Dates: start: 20100601, end: 20160401

REACTIONS (7)
  - Seizure [None]
  - Pain [None]
  - Impaired work ability [None]
  - Heart rate increased [None]
  - Asthenia [None]
  - Hallucination [None]
  - Hypertension [None]

NARRATIVE: CASE EVENT DATE: 20170427
